FAERS Safety Report 7578306-7 (Version None)
Quarter: 2011Q2

REPORT INFORMATION
  Report Type: 
  Country: None (occurrence: None)
  Receive Date: 20110628
  Receipt Date: 20110620
  Transmission Date: 20111010
  Serious: Yes (Death)
  Sender: FDA-Public Use
  Company Number: US-ELI_LILLY_AND_COMPANY-US201105004409

PATIENT
  Sex: Male
  Weight: 70.295 kg

DRUGS (1)
  1. GEMZAR [Suspect]
     Indication: NEOPLASM MALIGNANT
     Dosage: 1000 MG, D1, D8, EVERY 21 DAYS
     Route: 042

REACTIONS (1)
  - NEOPLASM PROGRESSION [None]
